FAERS Safety Report 9100841 (Version 1)
Quarter: 2013Q1

REPORT INFORMATION
  Report Type: Spontaneous
  Country: US (occurrence: None)
  Receive Date: 20130220
  Receipt Date: 20130220
  Transmission Date: 20140127
  Serious: No
  Sender: FDA-Public Use
  Company Number: None

PATIENT
  Age: 66 Year
  Sex: Male
  Weight: 103.42 kg

DRUGS (13)
  1. ATORVASTATIN 40MG WATSON [Suspect]
     Indication: BLOOD CHOLESTEROL INCREASED
     Dosage: 40MG DAILY  PO
     Route: 048
     Dates: start: 20120901, end: 20130214
  2. TACROLIMUS [Concomitant]
  3. MYCOPHENOLATE MOFETIL [Concomitant]
  4. PREDNISONE [Concomitant]
  5. FLUTICASONE PROPIONATE [Concomitant]
  6. FINASTERIDE [Concomitant]
  7. FUROSEMIDE [Concomitant]
  8. LIPITOR [Concomitant]
  9. METOPROLOL TARTRATE [Concomitant]
  10. TAMSULOSIN HCL [Concomitant]
  11. VITAMIN D3 [Concomitant]
  12. VITAMIN SUPPLEMENT -HEALTH MARKET ONE DAILY ESSENTIAL- [Concomitant]
  13. WARFARIN SODIUM [Concomitant]

REACTIONS (4)
  - Neuropathy peripheral [None]
  - Hypoaesthesia [None]
  - Product substitution issue [None]
  - Product formulation issue [None]
